FAERS Safety Report 16422803 (Version 1)
Quarter: 2019Q2

REPORT INFORMATION
  Report Type: Spontaneous
  Country: US (occurrence: US)
  Receive Date: 20190612
  Receipt Date: 20190612
  Transmission Date: 20190711
  Serious: No
  Sender: FDA-Public Use
  Company Number: US-SA-2019SA157230

PATIENT
  Sex: Female

DRUGS (17)
  1. IBUPROFEN. [Concomitant]
     Active Substance: IBUPROFEN
  2. OMEPRAZOLE. [Concomitant]
     Active Substance: OMEPRAZOLE
  3. ANORO ELLIPTA [Concomitant]
     Active Substance: UMECLIDINIUM BROMIDE\VILANTEROL TRIFENATATE
  4. ZOLPIDEM TARTATE [Concomitant]
     Active Substance: ZOLPIDEM TARTRATE
  5. ALPRAZOLAM. [Concomitant]
     Active Substance: ALPRAZOLAM
  6. ARIPIPRAZOLE. [Concomitant]
     Active Substance: ARIPIPRAZOLE
  7. CYCLOBENZAPRIN [Concomitant]
     Active Substance: CYCLOBENZAPRINE
  8. VYVANSE [Concomitant]
     Active Substance: LISDEXAMFETAMINE DIMESYLATE
  9. KLOR-CON [Concomitant]
     Active Substance: POTASSIUM CHLORIDE
  10. METHOTREXATE. [Concomitant]
     Active Substance: METHOTREXATE
  11. KEVZARA [Suspect]
     Active Substance: SARILUMAB
     Dosage: 200 MG, QOW
     Route: 058
  12. LAMOTRIGINE. [Concomitant]
     Active Substance: LAMOTRIGINE
  13. ONDANSETRON [Concomitant]
     Active Substance: ONDANSETRON
  14. BUMETANIDE. [Concomitant]
     Active Substance: BUMETANIDE
  15. GABAPENTIN. [Concomitant]
     Active Substance: GABAPENTIN
  16. LOSARTAN POTASSIUM. [Concomitant]
     Active Substance: LOSARTAN POTASSIUM
  17. AMLODIPINE BESILATE [Concomitant]
     Active Substance: AMLODIPINE BESYLATE

REACTIONS (1)
  - Injection site swelling [Not Recovered/Not Resolved]
